FAERS Safety Report 16970187 (Version 3)
Quarter: 2019Q4

REPORT INFORMATION
  Report Type: Report from Study
  Country: BR (occurrence: BR)
  Receive Date: 20191029
  Receipt Date: 20191217
  Transmission Date: 20200122
  Serious: Yes (Other)
  Sender: FDA-Public Use
  Company Number: NVSC2019BR017340

PATIENT
  Sex: Male
  Weight: 118 kg

DRUGS (1)
  1. COSENTYX [Suspect]
     Active Substance: SECUKINUMAB
     Indication: PRODUCT USED FOR UNKNOWN INDICATION
     Dosage: 300 MG
     Route: 065
     Dates: start: 20190917

REACTIONS (4)
  - Pneumonia [Not Recovered/Not Resolved]
  - Cough [Unknown]
  - Influenza [Unknown]
  - Throat irritation [Unknown]
